FAERS Safety Report 5782007-5 (Version None)
Quarter: 2008Q2

REPORT INFORMATION
  Report Type: 
  Country: None (occurrence: None)
  Receive Date: 20080623
  Receipt Date: 20080118
  Transmission Date: 20081010
  Serious: No
  Sender: FDA-Public Use
  Company Number: US-ASTRAZENECA-2008UW01386

PATIENT
  Age: 80 Year
  Sex: Female

DRUGS (6)
  1. RHINOCORT [Suspect]
     Indication: RHINITIS ALLERGIC
     Route: 045
  2. ATENOLOL [Concomitant]
  3. CAPTOPRIL HCTZ [Concomitant]
  4. VITAMINS [Concomitant]
  5. CALTRATE [Concomitant]
  6. ASPIRIN [Concomitant]
     Route: 048

REACTIONS (4)
  - DIZZINESS [None]
  - MALAISE [None]
  - POLLAKIURIA [None]
  - WEIGHT INCREASED [None]
